FAERS Safety Report 22600539 (Version 2)
Quarter: 2023Q2

REPORT INFORMATION
  Report Type: Spontaneous
  Country: CH (occurrence: CH)
  Receive Date: 20230614
  Receipt Date: 20230621
  Transmission Date: 20230721
  Serious: No
  Sender: FDA-Public Use
  Company Number: CH-MLMSERVICE-20230602-4323874-1

PATIENT
  Age: 35 Year

DRUGS (16)
  1. ENBREL [Suspect]
     Active Substance: ETANERCEPT
     Indication: Immunosuppressant drug therapy
     Dosage: UNK
     Route: 065
  2. ENBREL [Suspect]
     Active Substance: ETANERCEPT
     Indication: Graft versus host disease in skin
  3. ENBREL [Suspect]
     Active Substance: ETANERCEPT
     Indication: Graft versus host disease in eye
  4. ENBREL [Suspect]
     Active Substance: ETANERCEPT
     Indication: Graft versus host disease in eye
  5. TACROLIMUS [Concomitant]
     Active Substance: TACROLIMUS
     Indication: Immunosuppressant drug therapy
     Dosage: UNK
     Route: 065
  6. RUXOLITINIB [Concomitant]
     Active Substance: RUXOLITINIB
     Indication: Immunosuppressant drug therapy
     Dosage: UNK
     Route: 065
  7. PREDNISONE [Concomitant]
     Active Substance: PREDNISONE
     Indication: Immunosuppressant drug therapy
     Dosage: 100 MILLIGRAM, QD
     Route: 065
  8. PREDNISONE [Concomitant]
     Active Substance: PREDNISONE
     Dosage: 55 MILLIGRAM, QD
     Route: 065
  9. PREDNISONE [Concomitant]
     Active Substance: PREDNISONE
     Dosage: 50 MILLIGRAM, QD
     Route: 065
  10. PREDNISONE [Concomitant]
     Active Substance: PREDNISONE
     Dosage: 45 MILLIGRAM, QD
     Route: 065
  11. CYCLOSPORINE [Concomitant]
     Active Substance: CYCLOSPORINE
     Indication: Immunosuppressant drug therapy
     Dosage: UNK
     Route: 065
  12. MYCOPHENOLATE MOFETIL [Concomitant]
     Active Substance: MYCOPHENOLATE MOFETIL
     Indication: Immunosuppressant drug therapy
     Dosage: UNK
     Route: 065
  13. VALACYCLOVIR HYDROCHLORIDE [Suspect]
     Active Substance: VALACYCLOVIR HYDROCHLORIDE
     Indication: Antiviral prophylaxis
     Dosage: FREQ:12 H;
     Route: 048
  14. TOCILIZUMAB [Concomitant]
     Active Substance: TOCILIZUMAB
     Indication: Immunosuppressant drug therapy
     Dosage: UNK
     Route: 065
  15. IBRUTINIB [Concomitant]
     Active Substance: IBRUTINIB
     Indication: Immunosuppressant drug therapy
     Dosage: UNK
     Route: 065
  16. CIDOFOVIR [Concomitant]
     Active Substance: CIDOFOVIR
     Indication: Antiviral prophylaxis
     Dosage: 5 MG/KG, WEEKLY
     Route: 042

REACTIONS (1)
  - Off label use [Unknown]
